FAERS Safety Report 22250992 (Version 1)
Quarter: 2023Q2

REPORT INFORMATION
  Report Type: Spontaneous
  Country: CN (occurrence: CN)
  Receive Date: 20230425
  Receipt Date: 20230425
  Transmission Date: 20230722
  Serious: Yes (Hospitalization, Other)
  Sender: FDA-Public Use
  Company Number: CN-009507513-2304CHN008910

PATIENT
  Age: 66 Year
  Sex: Female
  Weight: 45 kg

DRUGS (6)
  1. KEYTRUDA [Suspect]
     Active Substance: PEMBROLIZUMAB
     Indication: Endometrial cancer
     Dosage: 200 MILLIGRAM, ONCE, D1
     Route: 041
     Dates: start: 20230404, end: 20230404
  2. PACLITAXEL [Suspect]
     Active Substance: PACLITAXEL
     Indication: Endometrial cancer
     Dosage: 350 MILLIGRAM, ONCE, D1
     Route: 041
     Dates: start: 20230404, end: 20230404
  3. CARBOPLATIN [Suspect]
     Active Substance: CARBOPLATIN
     Indication: Endometrial cancer
     Dosage: 420 MILLIGRAM, ONCE, D1
     Route: 041
     Dates: start: 20230404, end: 20230404
  4. SODIUM CHLORIDE [Concomitant]
     Active Substance: SODIUM CHLORIDE
     Indication: Medication dilution
     Dosage: 100 MILLILITER, ONCE
     Route: 041
     Dates: start: 20230404, end: 20230404
  5. SODIUM CHLORIDE [Concomitant]
     Active Substance: SODIUM CHLORIDE
     Dosage: 100 MILLILITER, ONCE
     Route: 041
     Dates: start: 20230404, end: 20230404
  6. SODIUM CHLORIDE [Concomitant]
     Active Substance: SODIUM CHLORIDE
     Dosage: 500 MILLILITER, ONCE
     Route: 041
     Dates: start: 20230404, end: 20230404

REACTIONS (2)
  - Myelosuppression [Recovering/Resolving]
  - Diarrhoea [Recovering/Resolving]

NARRATIVE: CASE EVENT DATE: 20230411
